FAERS Safety Report 5067416-4 (Version None)
Quarter: 2006Q3

REPORT INFORMATION
  Report Type: 
  Country: None (occurrence: None)
  Receive Date: 20060726
  Receipt Date: 20060720
  Transmission Date: 20061208
  Serious: Yes (Death)
  Sender: FDA-Public Use
  Company Number: 200610678BFR

PATIENT
  Age: 55 Year
  Sex: Male

DRUGS (14)
  1. SORAFENIB [Suspect]
     Indication: RENAL CELL CARCINOMA STAGE UNSPECIFIED
     Dosage: 400 MG, TOTAL DAILY, ORAL
     Route: 048
     Dates: start: 20060403, end: 20060506
  2. SORAFENIB [Suspect]
     Indication: RENAL CELL CARCINOMA STAGE UNSPECIFIED
     Dosage: 400 MG, TOTAL DAILY, ORAL
     Route: 048
     Dates: start: 20060506, end: 20060609
  3. SORAFENIB [Suspect]
     Indication: RENAL CELL CARCINOMA STAGE UNSPECIFIED
     Dosage: 400 MG, TOTAL DAILY, ORAL
     Route: 048
     Dates: start: 20060609, end: 20060623
  4. EFFERALGAN CODEINE [Concomitant]
  5. SKENAN [Concomitant]
  6. MORPHINE SULFATE [Concomitant]
  7. XANAX [Concomitant]
  8. IMOVANE [Concomitant]
  9. FORLAX [Concomitant]
  10. ZOPHREN [Concomitant]
  11. PRIMPERAN TAB [Concomitant]
  12. AREDIA [Concomitant]
  13. TRIFLUCAN [Concomitant]
  14. FUNGIZONE [Concomitant]

REACTIONS (11)
  - ALOPECIA [None]
  - ANOREXIA [None]
  - BACK PAIN [None]
  - CHILLS [None]
  - FATIGUE [None]
  - FEELING HOT [None]
  - GENERAL PHYSICAL HEALTH DETERIORATION [None]
  - NAUSEA [None]
  - SKIN REACTION [None]
  - STOMATITIS [None]
  - VOMITING [None]
